FAERS Safety Report 5544909-4 (Version None)
Quarter: 2007Q4

REPORT INFORMATION
  Report Type: 
  Country: None (occurrence: None)
  Receive Date: 20071210
  Receipt Date: 20070112
  Transmission Date: 20080405
  Serious: No
  Sender: FDA-Public Use
  Company Number: US-AMGEN-KDL206818

PATIENT
  Sex: Male
  Weight: 65.8 kg

DRUGS (7)
  1. ENBREL [Suspect]
     Indication: PSORIASIS
     Route: 058
     Dates: start: 20061101
  2. MEMANTINE HCL [Concomitant]
  3. LEVOXYL [Concomitant]
  4. LEXAPRO [Concomitant]
  5. SINEMET [Concomitant]
     Route: 048
  6. SEROQUEL [Concomitant]
  7. OS-CAL [Concomitant]

REACTIONS (1)
  - DRUG INEFFECTIVE [None]
